FAERS Safety Report 16794924 (Version 2)
Quarter: 2019Q3

REPORT INFORMATION
  Report Type: Spontaneous
  Country: US (occurrence: US)
  Receive Date: 20190911
  Receipt Date: 20190912
  Transmission Date: 20191005
  Serious: No
  Sender: FDA-Public Use
  Company Number: US-PFIZER INC-2016575096

PATIENT
  Age: 73 Year
  Sex: Female

DRUGS (26)
  1. LYRICA [Suspect]
     Active Substance: PREGABALIN
     Indication: FIBROMYALGIA
     Dosage: 200 MG, 2X/DAY
     Route: 048
     Dates: start: 20161206
  2. FLAXSEED OIL [LINUM USITATISSIMUM OIL] [Concomitant]
     Dosage: 1000 MG, 1X/DAY
     Route: 048
  3. CHILDRENS BENADRYL ALLERGY [Concomitant]
     Active Substance: DIPHENHYDRAMINE HYDROCHLORIDE
     Dosage: UNK (5 CC EVERY 2 HOURS)
  4. NYSTATIN. [Concomitant]
     Active Substance: NYSTATIN
     Dosage: 5 ML, 4X/DAY
     Route: 048
     Dates: start: 20151224
  5. NORTRIPTYLINE [Concomitant]
     Active Substance: NORTRIPTYLINE
     Dosage: 25 MG, 1X/DAY (EVERY BEDTIME)
     Route: 048
     Dates: start: 20160930
  6. TRAZODONE [Concomitant]
     Active Substance: TRAZODONE HYDROCHLORIDE
     Dosage: 100 MG, AS NEEDED (TAKE 2 TABLET AT NIGHT AS NEEDED)
     Route: 048
     Dates: start: 20160802
  7. TRAMADOL. [Concomitant]
     Active Substance: TRAMADOL
     Dosage: 50 MG, AS NEEDED (EVERY 6 HOURS AS NEEDED)
     Route: 048
     Dates: start: 20160930
  8. PRAZOSIN. [Concomitant]
     Active Substance: PRAZOSIN
     Dosage: 1 MG, 1X/DAY (AT BEDTIME)
     Route: 048
     Dates: start: 20160930
  9. ZALEPLON. [Concomitant]
     Active Substance: ZALEPLON
     Dosage: 10 MG, 1X/DAY (TAKE 1 CAPSULE BY ORAL ROUTE EVERY DAY AT BEDTIME)
     Route: 048
     Dates: start: 20160425
  10. OMEPRAZOLE. [Concomitant]
     Active Substance: OMEPRAZOLE
     Dosage: 40 MG, 1X/DAY (EVERY DAY BEFORE A MEAL)
     Route: 048
     Dates: start: 20160802
  11. VITAMIN E [Concomitant]
     Active Substance: .ALPHA.-TOCOPHEROL
     Dosage: 100 IU, 1X/DAY
     Route: 048
  12. DOXYCYCLINE HYCLATE [DOXYCYCLINE] [Concomitant]
     Dosage: 50 MG, 2X/DAY (TAKE 1 CAP PO BID (TWICE A DAY) X 10 DAYS IN SYCLES WITH CIPRO PRN (AS NEEDED)
     Route: 048
  13. NIACIN. [Concomitant]
     Active Substance: NIACIN
     Dosage: 500 MG, DAILY
     Route: 048
     Dates: start: 20151218
  14. LEVOTHYROXINE. [Concomitant]
     Active Substance: LEVOTHYROXINE
     Dosage: 125 UG, DAILY
     Route: 048
     Dates: start: 20161205
  15. LIDOCAINE. [Concomitant]
     Active Substance: LIDOCAINE
     Dosage: 5 ML, UNK (TAKE 5 MILLILITER BY ORAL ROUTE EVERY 6 HOURS AND SWISH AND SPIT OUT)
     Route: 048
     Dates: start: 20151218
  16. TIZANIDINE. [Concomitant]
     Active Substance: TIZANIDINE
     Dosage: 4 MG, AS NEEDED (EVERY 12 HOURS AS NEEDED NOT TO EXCEED 3 DOSES IN 24 HOURS)
     Route: 048
     Dates: start: 20160509
  17. DUONEB [Concomitant]
     Active Substance: ALBUTEROL SULFATE\IPRATROPIUM BROMIDE
     Dosage: UNK 0.5 MG-3 MG (2.5 MG BASE)/3ML SOLUTION) (INHALE 3 MILLILITER BY NEBULIZATION ROUTE)
     Dates: start: 20160608
  18. HYDROXYZINE HCL [Concomitant]
     Active Substance: HYDROXYZINE HYDROCHLORIDE
     Indication: PRURITUS
     Dosage: 25 MG, AS NEEDED (4 TIMES EVERY DAY PRN (AS NEEDED)
     Route: 048
     Dates: start: 20160930
  19. ESTRADIOL. [Concomitant]
     Active Substance: ESTRADIOL
     Dosage: 0.5 MG, DAILY
     Route: 048
     Dates: start: 20160930
  20. BUDESONIDE. [Concomitant]
     Active Substance: BUDESONIDE
     Dosage: 2 ML, 2X/DAY (0.25 MG/2 ML) (INHALE 2 MILLILITER BY NEBULIZATION ROUTE)
     Dates: start: 20160930
  21. CIPRO [Concomitant]
     Active Substance: CIPROFLOXACIN HYDROCHLORIDE
     Dosage: UNK UNK, AS NEEDED
  22. VENLAFAXINE [VENLAFAXINE HYDROCHLORIDE] [Concomitant]
     Dosage: 150 MG, DAILY
     Route: 048
     Dates: start: 20160218
  23. OMEGA 3 [FISH OIL] [Concomitant]
     Active Substance: FISH OIL
     Dosage: 1 DF, 1X/DAY (350 MG-235 MG-90 MG-597 MG)
     Route: 048
  24. VENLAFAXINE [Concomitant]
     Active Substance: VENLAFAXINE HYDROCHLORIDE
     Dosage: UNK, DAILY (TAKE 1 TABLET ALONG WITH 150 MG TAB BY ORAL ROUTE TIMES EVERY DAY WITH FOOD)
     Route: 048
  25. CALCIUM CARBONATE. [Concomitant]
     Active Substance: CALCIUM CARBONATE
     Dosage: 1250 MG, 1X/DAY (500 MG CALCIUM (1250 MG)
     Route: 048
  26. LIDOCAINE. [Concomitant]
     Active Substance: LIDOCAINE
     Dosage: 5 UNK, UNK (EVERY 6 HOURS AND SWISH AND SPIT OUT)
     Route: 048
     Dates: start: 20161206

REACTIONS (2)
  - Diarrhoea [Unknown]
  - Malaise [Unknown]
